FAERS Safety Report 15683731 (Version 1)
Quarter: 2018Q4

REPORT INFORMATION
  Report Type: Spontaneous
  Country: BR (occurrence: BR)
  Receive Date: 20181204
  Receipt Date: 20181204
  Transmission Date: 20190205
  Serious: Yes (Other)
  Sender: FDA-Public Use
  Company Number: BR-LUPIN PHARMACEUTICALS INC.-2018-08312

PATIENT
  Age: 58 Year
  Sex: Female

DRUGS (1)
  1. ETHAMBUTOL [Suspect]
     Active Substance: ETHAMBUTOL HYDROCHLORIDE
     Indication: CUTANEOUS TUBERCULOSIS
     Dosage: UNK
     Route: 065

REACTIONS (1)
  - Macular degeneration [Unknown]
